FAERS Safety Report 17424917 (Version 1)
Quarter: 2020Q1

REPORT INFORMATION
  Report Type: Spontaneous
  Country: US (occurrence: US)
  Receive Date: 20200217
  Receipt Date: 20200217
  Transmission Date: 20200409
  Serious: No
  Sender: FDA-Public Use
  Company Number: US-AMGEN-USASP2020024437

PATIENT

DRUGS (3)
  1. PLERIXAFOR [Concomitant]
     Active Substance: PLERIXAFOR
     Dosage: 240 MICROGRAM/KILOGRAM(NEAREST VIAL SIZE)
  2. LENALIDOMIDE [Concomitant]
     Active Substance: LENALIDOMIDE
     Dosage: UNK
  3. FILGRASTIM [Suspect]
     Active Substance: FILGRASTIM
     Indication: HAEMATOPOIETIC STEM CELL MOBILISATION
     Dosage: 10 MICROGRAM/KILOGRAM, QD (FOR 3 DAYS)
     Route: 058

REACTIONS (1)
  - Therapeutic product effect incomplete [Unknown]
